FAERS Safety Report 13874096 (Version 1)
Quarter: 2017Q3

REPORT INFORMATION
  Report Type: Spontaneous
  Country: US (occurrence: US)
  Receive Date: 20170816
  Receipt Date: 20170816
  Transmission Date: 20171127
  Serious: No
  Sender: FDA-Public Use
  Company Number: GXBR2017US001170

PATIENT
  Sex: Male
  Weight: 99 kg

DRUGS (4)
  1. BROVANA [Concomitant]
     Active Substance: ARFORMOTEROL TARTRATE
     Indication: CHRONIC OBSTRUCTIVE PULMONARY DISEASE
     Dosage: 1 DF, UNK
     Route: 055
  2. ALBUTEROL. [Concomitant]
     Active Substance: ALBUTEROL
     Indication: CHRONIC OBSTRUCTIVE PULMONARY DISEASE
     Dosage: UNK UNK, QD 6 TO 8 HOURS
     Route: 055
  3. BUDESONIDE SANDOZ [Suspect]
     Active Substance: BUDESONIDE
     Indication: CHRONIC OBSTRUCTIVE PULMONARY DISEASE
     Dosage: 1 DF, BID
     Route: 055
  4. BUDESONIDE SANDOZ [Suspect]
     Active Substance: BUDESONIDE
     Dosage: UNK
     Route: 065

REACTIONS (4)
  - Dyspnoea [Recovering/Resolving]
  - Nasopharyngitis [Not Recovered/Not Resolved]
  - Dysphagia [Recovering/Resolving]
  - Oral disorder [Recovering/Resolving]
